FAERS Safety Report 7984497-6 (Version None)
Quarter: 2011Q4

REPORT INFORMATION
  Report Type: 
  Country: None (occurrence: None)
  Receive Date: 20111216
  Receipt Date: 20111208
  Transmission Date: 20120403
  Serious: Yes (Other)
  Sender: FDA-Public Use
  Company Number: DE-UCBSA-047388

PATIENT
  Age: 52 Year
  Sex: Female
  Weight: 50 kg

DRUGS (3)
  1. KEPPRA [Suspect]
     Dates: start: 20111207
  2. MELPERON [Suspect]
     Dosage: TOTAL AMOUNT:10,000 MG (100 TABLETS)
     Dates: start: 20111207
  3. ATACAND [Suspect]
     Dosage: 2 TABLETS PER DAY
     Dates: start: 20111207

REACTIONS (5)
  - SUICIDE ATTEMPT [None]
  - VOMITING [None]
  - SPEECH DISORDER [None]
  - DEPRESSED MOOD [None]
  - RESTLESSNESS [None]
